FAERS Safety Report 7801557-0 (Version None)
Quarter: 2011Q4

REPORT INFORMATION
  Report Type: 
  Country: None (occurrence: None)
  Receive Date: 20111007
  Receipt Date: 20110928
  Transmission Date: 20120403
  Serious: Yes (Other)
  Sender: FDA-Public Use
  Company Number: JP-CELGENEUS-087-21880-11093530

PATIENT
  Age: 68 Year
  Sex: Male

DRUGS (11)
  1. DEXAMETHASONE [Suspect]
     Indication: AMYLOIDOSIS
     Dosage: 40 MILLIGRAM
     Route: 048
     Dates: start: 20101030, end: 20101108
  2. DEXAMETHASONE [Suspect]
     Dosage: 20 MILLIGRAM
     Route: 048
     Dates: start: 20110427, end: 20110428
  3. LASIX [Concomitant]
     Indication: RENAL FAILURE CHRONIC
     Dosage: 40 MILLIGRAM
     Route: 048
     Dates: start: 20101030, end: 20101113
  4. ADSORBIN [Concomitant]
     Dosage: 3 GRAM
     Route: 048
     Dates: start: 20101030, end: 20101113
  5. REVLIMID [Suspect]
     Indication: AMYLOIDOSIS
     Dosage: 15 MILLIGRAM
     Route: 048
     Dates: start: 20101030, end: 20101113
  6. LASIX [Concomitant]
     Dosage: 20 MILLIGRAM
     Route: 048
     Dates: start: 20100422, end: 20100510
  7. FAMOTIDINE [Concomitant]
     Indication: PROPHYLAXIS
     Dosage: 40 MILLIGRAM
     Route: 048
     Dates: start: 20101030, end: 20101113
  8. FAMOTIDINE [Concomitant]
     Dosage: 40 MILLIGRAM
     Route: 048
     Dates: start: 20100422, end: 20100510
  9. REVLIMID [Suspect]
     Dosage: 5 MILLIGRAM
     Route: 048
     Dates: start: 20110422, end: 20110510
  10. VITAMEDIN [Concomitant]
     Dosage: 3 CAPSULE
     Route: 048
     Dates: start: 20101030, end: 20101113
  11. DEXAMETHASONE [Suspect]
     Dosage: 20 MILLIGRAM
     Route: 048
     Dates: start: 20110506, end: 20110507

REACTIONS (5)
  - HEPATIC FUNCTION ABNORMAL [None]
  - ERYTHEMA MULTIFORME [None]
  - PLATELET COUNT DECREASED [None]
  - LIVER DISORDER [None]
  - OEDEMA [None]
